FAERS Safety Report 11165848 (Version 1)
Quarter: 2015Q2

REPORT INFORMATION
  Report Type: Spontaneous
  Country: US (occurrence: US)
  Receive Date: 20150604
  Receipt Date: 20150604
  Transmission Date: 20150821
  Serious: No
  Sender: FDA-Public Use
  Company Number: US-GLAXOSMITHKLINE-US2015075698

PATIENT
  Sex: Female

DRUGS (5)
  1. REQUIP [Suspect]
     Active Substance: ROPINIROLE HYDROCHLORIDE
     Indication: RESTLESS LEGS SYNDROME
     Dosage: 3 MG, QD
     Route: 048
  2. REQUIP XL [Suspect]
     Active Substance: ROPINIROLE HYDROCHLORIDE
     Indication: RESTLESS LEGS SYNDROME
     Dosage: 4 MG, QD
     Route: 048
  3. GABAPENTIN. [Concomitant]
     Active Substance: GABAPENTIN
  4. SIMVASTATIN. [Concomitant]
     Active Substance: SIMVASTATIN
  5. AMITRIPTYLINE [Concomitant]
     Active Substance: AMITRIPTYLINE

REACTIONS (3)
  - Vomiting [Recovering/Resolving]
  - Drug ineffective [Unknown]
  - Gastroenteritis viral [Recovering/Resolving]
